FAERS Safety Report 5130602-9 (Version None)
Quarter: 2006Q4

REPORT INFORMATION
  Report Type: 
  Country: None (occurrence: None)
  Receive Date: 20061013
  Receipt Date: 20060928
  Transmission Date: 20070319
  Serious: Yes (Hospitalization)
  Sender: FDA-Public Use
  Company Number: US200605002540

PATIENT
  Sex: Female

DRUGS (13)
  1. FORTEO [Suspect]
     Indication: OSTEOPOROSIS
     Dates: end: 20040701
  2. FORTEO [Concomitant]
  3. ALDACTAZIDE [Concomitant]
  4. ALTACE [Concomitant]
  5. KERLONE [Concomitant]
  6. LIPITOR [Concomitant]
  7. DILAUDID [Concomitant]
  8. VALIUM [Concomitant]
  9. FOLIC ACID [Concomitant]
  10. OSCAL (CALCIUM CARBONATE) [Concomitant]
  11. PREDNISONE TAB [Concomitant]
  12. MESTINON [Concomitant]
  13. ACTIGALL (UROSODEOXYCHOLIC ACID) [Concomitant]

REACTIONS (1)
  - HAEMOPTYSIS [None]
